FAERS Safety Report 10058236 (Version 2)
Quarter: 2014Q2

REPORT INFORMATION
  Report Type: Spontaneous
  Country: US (occurrence: US)
  Receive Date: 20140404
  Receipt Date: 20140404
  Transmission Date: 20141212
  Serious: Yes (Hospitalization, Other)
  Sender: FDA-Public Use
  Company Number: US-JNJFOC-20110800148

PATIENT
  Age: 57 Year
  Sex: 0

DRUGS (1)
  1. LEVAQUIN [Suspect]
     Indication: URINARY TRACT INFECTION
     Route: 048
     Dates: start: 20080715

REACTIONS (3)
  - Tendon rupture [Unknown]
  - Rotator cuff syndrome [Unknown]
  - Rotator cuff syndrome [Unknown]
